FAERS Safety Report 5394617-8 (Version None)
Quarter: 2007Q3

REPORT INFORMATION
  Report Type: 
  Country: None (occurrence: None)
  Receive Date: 20070723
  Receipt Date: 20070711
  Transmission Date: 20080115
  Serious: Yes (Other)
  Sender: FDA-Public Use
  Company Number: US-PFIZER INC-2007057824

PATIENT
  Sex: Male
  Weight: 64 kg

DRUGS (11)
  1. TIKOSYN [Interacting]
     Indication: ATRIAL FIBRILLATION
  2. PREDNISONE [Interacting]
     Indication: GOUT
     Dates: start: 20070710, end: 20070710
  3. IBUPROFEN [Suspect]
  4. LOPRESSOR [Suspect]
  5. BUDESONIDE [Concomitant]
  6. WARFARIN SODIUM [Concomitant]
  7. LORATADINE [Concomitant]
  8. LIPITOR [Concomitant]
  9. XANAX [Concomitant]
     Dosage: FREQ:AS NEEDED
  10. ACETYLSALICYLIC ACID SRT [Concomitant]
  11. FLONASE [Concomitant]
     Dosage: FREQ:AS NEEDED

REACTIONS (6)
  - DRUG INTERACTION [None]
  - GOUT [None]
  - HEART RATE DECREASED [None]
  - HEART RATE INCREASED [None]
  - INSOMNIA [None]
  - INTERNATIONAL NORMALISED RATIO ABNORMAL [None]
